FAERS Safety Report 14679685 (Version 1)
Quarter: 2018Q1

REPORT INFORMATION
  Report Type: Spontaneous
  Country: US (occurrence: US)
  Receive Date: 20180326
  Receipt Date: 20180326
  Transmission Date: 20180509
  Serious: Yes (Other)
  Sender: FDA-Public Use
  Company Number: US-JNJFOC-20180329944

PATIENT
  Sex: Male
  Weight: 59 kg

DRUGS (6)
  1. IMBRUVICA [Suspect]
     Active Substance: IBRUTINIB
     Indication: GRAFT VERSUS HOST DISEASE
     Route: 048
     Dates: start: 20171002, end: 201801
  2. PROVENTIL [Concomitant]
     Active Substance: ALBUTEROL
  3. GABAPENTIN. [Concomitant]
     Active Substance: GABAPENTIN
  4. EPOGEN [Concomitant]
     Active Substance: ERYTHROPOIETIN
  5. NASACORT [Concomitant]
     Active Substance: TRIAMCINOLONE ACETONIDE
  6. LIDOCAINE. [Concomitant]
     Active Substance: LIDOCAINE

REACTIONS (2)
  - Atrial fibrillation [Unknown]
  - Pericardial haemorrhage [Unknown]
